FAERS Safety Report 5959906-4 (Version None)
Quarter: 2008Q4

REPORT INFORMATION
  Report Type: 
  Country: None (occurrence: None)
  Receive Date: 20081119
  Receipt Date: 20081119
  Transmission Date: 20090506
  Serious: Yes (Life-Threatening)
  Sender: FDA-Public Use
  Company Number: None

PATIENT
  Age: 72 Year
  Sex: Male
  Weight: 72 kg

DRUGS (10)
  1. FENTANYL TRANSDERMAL SYSTEM [Suspect]
     Indication: PAIN
     Dosage: 50 MCG/HR
     Dates: start: 20080715, end: 20080716
  2. HYDROMORPHONE HCL [Suspect]
     Dosage: 0/0.4/10
     Dates: start: 20080715, end: 20080716
  3. ASPIRIN [Concomitant]
  4. CLONIDINE [Concomitant]
  5. COLACE [Concomitant]
  6. FOLIC ACID [Concomitant]
  7. RAPAMUNE [Concomitant]
  8. TACROLIMUS [Concomitant]
  9. BACLOFEN [Concomitant]
  10. CACO3 [Concomitant]

REACTIONS (5)
  - BACK PAIN [None]
  - ENDOCARDITIS [None]
  - LOSS OF CONSCIOUSNESS [None]
  - PYREXIA [None]
  - RESPIRATORY RATE DECREASED [None]
